FAERS Safety Report 7812701-3 (Version None)
Quarter: 2011Q4

REPORT INFORMATION
  Report Type: 
  Country: None (occurrence: None)
  Receive Date: 20111011
  Receipt Date: 20110927
  Transmission Date: 20120403
  Serious: Yes (Other)
  Sender: FDA-Public Use
  Company Number: FK201102072

PATIENT
  Age: 57 Year
  Sex: Male

DRUGS (1)
  1. PACLITAXEL [Suspect]
     Indication: COLON CANCER
     Dosage: 100, MG/BODY/WEEK
     Dates: start: 20070101

REACTIONS (6)
  - MEDIASTINAL ABSCESS [None]
  - PLEURAL EFFUSION [None]
  - FATIGUE [None]
  - DYSPNOEA [None]
  - EMPYEMA [None]
  - PYREXIA [None]
